FAERS Safety Report 13081746 (Version 20)
Quarter: 2018Q3

REPORT INFORMATION
  Report Type: Spontaneous
  Country: US (occurrence: US)
  Receive Date: 20170103
  Receipt Date: 20180705
  Transmission Date: 20181010
  Serious: Yes (Death, Other)
  Sender: FDA-Public Use
  Company Number: US-PFIZER INC-2016592876

PATIENT
  Age: 60 Year
  Sex: Female

DRUGS (5)
  1. SUTENT [Suspect]
     Active Substance: SUNITINIB MALATE
     Dosage: 12.5 MG, CYCLIC (28 DAYS ON/14 DAYS OFF)
     Dates: end: 20170326
  2. SUTENT [Suspect]
     Active Substance: SUNITINIB MALATE
     Dosage: 50 MG, CYCLIC (28 DAYS ON/14 DAYS OFF)
     Dates: start: 20161205
  3. SUTENT [Suspect]
     Active Substance: SUNITINIB MALATE
     Dosage: 12.5 MG, CYCLIC (28 DAYS ON/14 DAYS OFF)
     Dates: start: 20170301
  4. SUTENT [Suspect]
     Active Substance: SUNITINIB MALATE
     Dosage: 12.5 MG, CYCLIC (28 DAYS ON/14 DAYS OFF)
     Dates: start: 201611, end: 20170326
  5. SUTENT [Suspect]
     Active Substance: SUNITINIB MALATE
     Indication: THYROID CANCER METASTATIC
     Dosage: 50 MG, CYCLIC (28 DAYS ON/14 DAYS OFF)
     Dates: start: 20161107

REACTIONS (12)
  - Vomiting [Unknown]
  - Blood calcium abnormal [Unknown]
  - Neoplasm progression [Unknown]
  - Cough [Unknown]
  - Dysphonia [Unknown]
  - Product use in unapproved indication [Unknown]
  - Nausea [Unknown]
  - Death [Fatal]
  - Jaundice [Unknown]
  - Liver function test abnormal [Unknown]
  - Fatigue [Unknown]
  - Asthenia [Recovered/Resolved]

NARRATIVE: CASE EVENT DATE: 20161107
